FAERS Safety Report 14021137 (Version 1)
Quarter: 2017Q3

REPORT INFORMATION
  Report Type: Spontaneous
  Country: US (occurrence: US)
  Receive Date: 20170928
  Receipt Date: 20170928
  Transmission Date: 20171128
  Serious: No
  Sender: FDA-Public Use
  Company Number: US-ROCHE-GNE291102

PATIENT
  Sex: Male

DRUGS (4)
  1. ANTIBIOTIC EYE DROPS (UNK INGREDIENTS) [Concomitant]
     Indication: PRODUCT USED FOR UNKNOWN INDICATION
  2. LUCENTIS [Suspect]
     Active Substance: RANIBIZUMAB
     Indication: NEOVASCULAR AGE-RELATED MACULAR DEGENERATION
     Dosage: 0.3 MG, UNK
     Route: 050
     Dates: start: 200904
  3. LUCENTIS [Suspect]
     Active Substance: RANIBIZUMAB
     Dosage: 0.5 MG, UNK
     Route: 050
  4. LUCENTIS [Suspect]
     Active Substance: RANIBIZUMAB
     Dosage: 1 MG, UNK
     Route: 050

REACTIONS (5)
  - Ocular hyperaemia [Recovered/Resolved]
  - Visual impairment [None]
  - Drug ineffective [None]
  - Eye haemorrhage [None]
  - Vision blurred [None]

NARRATIVE: CASE EVENT DATE: 2009
